FAERS Safety Report 9411930 (Version 1)
Quarter: 2013Q3

REPORT INFORMATION
  Report Type: Report from Study
  Country: BR (occurrence: BR)
  Receive Date: 20130722
  Receipt Date: 20130722
  Transmission Date: 20140515
  Serious: Yes (Death)
  Sender: FDA-Public Use
  Company Number: PHHY2013BR077258

PATIENT
  Age: 86 Year
  Sex: Male

DRUGS (1)
  1. EXELON PATCH [Suspect]
     Indication: DEMENTIA
     Dosage: 18 MG/10 CM 2 (9.5 MG) DAILY
     Route: 062
     Dates: start: 201301

REACTIONS (1)
  - Death [Fatal]
